FAERS Safety Report 5443729-9 (Version None)
Quarter: 2007Q3

REPORT INFORMATION
  Report Type: 
  Country: None (occurrence: None)
  Receive Date: 20070905
  Receipt Date: 20070824
  Transmission Date: 20080115
  Serious: Yes (Hospitalization, Other)
  Sender: FDA-Public Use
  Company Number: US-PFIZER INC-2007070566

PATIENT
  Sex: Female

DRUGS (2)
  1. CELEBREX [Suspect]
     Indication: ARTHRITIS
     Dates: start: 20030527, end: 20030801
  2. CELEBREX [Suspect]
     Indication: BACK PAIN

REACTIONS (2)
  - ARTHRITIS [None]
  - CEREBROVASCULAR ACCIDENT [None]
